FAERS Safety Report 6186707-7 (Version None)
Quarter: 2009Q2

REPORT INFORMATION
  Report Type: 
  Country: None (occurrence: None)
  Receive Date: 20090508
  Receipt Date: 20090508
  Transmission Date: 20091009
  Serious: No
  Sender: FDA-Public Use
  Company Number: None

PATIENT
  Sex: Male
  Weight: 90.7194 kg

DRUGS (1)
  1. DIVALPROEX SODIUM [Suspect]
     Dosage: 500MG TWICE QHS PO
     Route: 048
     Dates: start: 20090309, end: 20090324

REACTIONS (7)
  - ABDOMINAL PAIN [None]
  - DYSPHORIA [None]
  - HEADACHE [None]
  - NAUSEA [None]
  - PARANOIA [None]
  - PRODUCT SUBSTITUTION ISSUE [None]
  - TREMOR [None]
